FAERS Safety Report 5721272-7 (Version None)
Quarter: 2008Q2

REPORT INFORMATION
  Report Type: 
  Country: None (occurrence: None)
  Receive Date: 20080429
  Receipt Date: 20080418
  Transmission Date: 20081010
  Serious: Yes (Death)
  Sender: FDA-Public Use
  Company Number: US-JNJFOC-20080405315

PATIENT
  Sex: Male
  Weight: 102.06 kg

DRUGS (8)
  1. FENTANYL TRANSDERMAL SYSTEM [Suspect]
     Dosage: 2X 50 UG/HR PATCHES
     Route: 062
  2. FENTANYL TRANSDERMAL SYSTEM [Suspect]
     Route: 062
  3. FENTANYL TRANSDERMAL SYSTEM [Suspect]
     Route: 062
  4. FENTANYL TRANSDERMAL SYSTEM [Suspect]
     Route: 062
  5. FENTANYL TRANSDERMAL SYSTEM [Suspect]
     Indication: CANCER PAIN
     Route: 062
  6. ROXICET [Concomitant]
     Indication: CANCER PAIN
     Route: 048
  7. MORPHINE [Concomitant]
     Indication: CANCER PAIN
     Route: 065
  8. ABHR [Concomitant]
     Indication: STOMACH DISCOMFORT
     Route: 065

REACTIONS (3)
  - DRUG INEFFECTIVE [None]
  - STOMACH DISCOMFORT [None]
  - TONGUE NEOPLASM MALIGNANT STAGE UNSPECIFIED [None]
